FAERS Safety Report 4663687-4 (Version None)
Quarter: 2005Q2

REPORT INFORMATION
  Report Type: 
  Country: None (occurrence: None)
  Receive Date: 20050517
  Receipt Date: 20050411
  Transmission Date: 20051028
  Serious: Yes (Death)
  Sender: FDA-Public Use
  Company Number: 2005S1002223

PATIENT
  Age: 48 Year
  Sex: Female

DRUGS (2)
  1. CLOZAPINE [Suspect]
     Indication: SCHIZOPHRENIA, PARANOID TYPE
     Dosage: 75 MG; QD; PO
     Route: 048
     Dates: start: 20040901, end: 20050225
  2. CLOZAPINE [Suspect]
     Indication: SCHIZOPHRENIA, PARANOID TYPE
     Dosage: 500 MG; HS; PO
     Route: 048
     Dates: start: 20040901, end: 20050225

REACTIONS (2)
  - LUNG CANCER METASTATIC [None]
  - METASTASES TO CENTRAL NERVOUS SYSTEM [None]
